FAERS Safety Report 4385375-4 (Version None)
Quarter: 2004Q2

REPORT INFORMATION
  Report Type: 
  Country: None (occurrence: None)
  Receive Date: 20040622
  Receipt Date: 20040610
  Transmission Date: 20050107
  Serious: Yes (Hospitalization)
  Sender: FDA-Public Use
  Company Number: US-JNJFOC-20040602983

PATIENT
  Age: 60 Year
  Sex: Female

DRUGS (17)
  1. DURAGESIC [Suspect]
     Indication: PAIN
     Dosage: 150 UG/HR, 2 IN 72 HOUR, TRANSDERMAL
     Route: 062
     Dates: start: 20040301
  2. PREDNISONE [Concomitant]
  3. FLEXERIL [Concomitant]
  4. PLACQUENIL (HYDROXYCHLOROQUINE PHOSPHATE) [Concomitant]
  5. NEXIUM [Concomitant]
  6. CELEBREX [Concomitant]
  7. CITROCAL (CALCIUM CITRATE) [Concomitant]
  8. VITAMIN B COMPLEX CAP [Concomitant]
  9. CELEXA [Concomitant]
  10. SINGULAIR [Concomitant]
  11. FLOMAX [Concomitant]
  12. SALAGEN [Concomitant]
  13. FORTEO (HYDROXOCOBALAMIN) [Concomitant]
  14. LASIX [Concomitant]
  15. VALIUM [Concomitant]
  16. OXYCODONE HCL [Concomitant]
  17. NEURONTIN [Concomitant]

REACTIONS (1)
  - PNEUMONIA [None]
